FAERS Safety Report 11708682 (Version 1)
Quarter: 2015Q4

REPORT INFORMATION
  Report Type: Spontaneous
  Country: US (occurrence: US)
  Receive Date: 20151104
  Receipt Date: 20151104
  Transmission Date: 20160304
  Serious: No
  Sender: FDA-Public Use
  Company Number: US-ELI_LILLY_AND_COMPANY-US201107007973

PATIENT
  Age: 57 Year
  Sex: Female

DRUGS (1)
  1. FORTEO [Suspect]
     Active Substance: TERIPARATIDE
     Indication: OSTEOPOROSIS
     Dosage: UNK
     Dates: end: 20110719

REACTIONS (7)
  - Muscle spasms [Unknown]
  - Pain in extremity [Unknown]
  - Diarrhoea [Unknown]
  - Nausea [Unknown]
  - Viral infection [Unknown]
  - Gait disturbance [Unknown]
  - Injection site rash [Unknown]
